FAERS Safety Report 9471289 (Version 1)
Quarter: 2013Q3

REPORT INFORMATION
  Report Type: Spontaneous
  Country: FR (occurrence: FR)
  Receive Date: 20130822
  Receipt Date: 20130822
  Transmission Date: 20140515
  Serious: Yes (Hospitalization)
  Sender: FDA-Public Use
  Company Number: FR-UCBSA-095413

PATIENT
  Sex: Male

DRUGS (5)
  1. VIMPAT [Suspect]
     Indication: EPILEPSY
     Dosage: DAILY DOSE: 250 MG IN THE MORNING AND EVENING
     Route: 048
  2. AMIODARONE [Suspect]
     Route: 048
  3. PANTOPRAZOLE [Concomitant]
     Route: 048
     Dates: start: 20130708
  4. SMECTA [Concomitant]
     Route: 048
  5. COLCHIMAX [Concomitant]
     Route: 048
     Dates: start: 201307

REACTIONS (2)
  - Sinus arrest [Recovered/Resolved]
  - Overdose [Unknown]
